FAERS Safety Report 17586760 (Version 1)
Quarter: 2020Q1

REPORT INFORMATION
  Report Type: Spontaneous
  Country: MY (occurrence: MY)
  Receive Date: 20200326
  Receipt Date: 20200326
  Transmission Date: 20200409
  Serious: Yes (Hospitalization, Other)
  Sender: FDA-Public Use
  Company Number: MY-VISTAPHARM, INC.-VER202003-000632

PATIENT
  Age: 50 Year
  Sex: Male

DRUGS (6)
  1. FLUPHENAZINE DECANOATE. [Concomitant]
     Active Substance: FLUPHENAZINE DECANOATE
     Indication: PSYCHOTIC DISORDER
  2. VALPROIC ACID. [Suspect]
     Active Substance: VALPROIC ACID
     Indication: PSYCHOTIC DISORDER
     Dosage: 500 MG TWICE A DAY
  3. CLOZAPINE. [Suspect]
     Active Substance: CLOZAPINE
     Indication: PSYCHOTIC DISORDER
     Dosage: INCREASED TO 100 MG DAILY OVER 2 WEEKS
     Route: 048
  4. VALPROIC ACID. [Suspect]
     Active Substance: VALPROIC ACID
     Indication: TARDIVE DYSKINESIA
  5. CLOZAPINE. [Suspect]
     Active Substance: CLOZAPINE
     Indication: TARDIVE DYSKINESIA
     Dosage: 25 MG DAILY
     Route: 048
  6. OLANZAPINE. [Concomitant]
     Active Substance: OLANZAPINE
     Indication: PSYCHOTIC DISORDER
     Dosage: UNKNOWN

REACTIONS (2)
  - Pericarditis [Recovered/Resolved]
  - Myocarditis [Recovered/Resolved]
